FAERS Safety Report 17359438 (Version 1)
Quarter: 2020Q1

REPORT INFORMATION
  Report Type: Spontaneous
  Country: BR (occurrence: BR)
  Receive Date: 20200203
  Receipt Date: 20200203
  Transmission Date: 20200409
  Serious: Yes (Other)
  Sender: FDA-Public Use
  Company Number: BR-SA-2019SA332294

PATIENT
  Age: 39 Year
  Sex: Female
  Weight: 76 kg

DRUGS (5)
  1. OESTROGEL [Concomitant]
     Active Substance: ESTRADIOL
     Indication: OESTRADIOL DECREASED
     Dosage: 1.2 MG, QD
     Route: 065
     Dates: start: 20191026
  2. PURAN [Suspect]
     Active Substance: LEVOTHYROXINE SODIUM
     Indication: HYPOTHYROIDISM
     Dosage: 50 UG, QD
     Route: 048
     Dates: start: 2017
  3. CLEXANE [Suspect]
     Active Substance: ENOXAPARIN SODIUM
     Indication: HYPERCOAGULATION
     Dosage: UNK UNK, QD
     Route: 058
     Dates: start: 20191026
  4. UTROGESTAN [Concomitant]
     Active Substance: PROGESTERONE
     Indication: PROGESTERONE DECREASED
     Dosage: 600 MG, TID
     Route: 048
     Dates: start: 20191026
  5. VITAMIN D [VITAMIN D NOS] [Concomitant]
     Active Substance: VITAMIN D NOS
     Indication: VITAMIN D DEFICIENCY
     Dosage: 20000 IU, QW
     Route: 048
     Dates: start: 2017

REACTIONS (5)
  - Product use in unapproved indication [Unknown]
  - Abortion spontaneous [Unknown]
  - Exposure during pregnancy [Unknown]
  - Device leakage [Unknown]
  - Complication of pregnancy [Unknown]

NARRATIVE: CASE EVENT DATE: 201912
